FAERS Safety Report 14294202 (Version 1)
Quarter: 2017Q4

REPORT INFORMATION
  Report Type: Spontaneous
  Country: IE (occurrence: IE)
  Receive Date: 20171217
  Receipt Date: 20171217
  Transmission Date: 20180321
  Serious: Yes (Other)
  Sender: FDA-Public Use
  Company Number: PHHY2017IE182542

PATIENT

DRUGS (1)
  1. DEFEROXAMINE [Suspect]
     Active Substance: DEFEROXAMINE\DEFEROXAMINE MESYLATE
     Indication: MYELODYSPLASTIC SYNDROME
     Dosage: 0.5?3 G, ADJUSTED TO SF, OVER AT LEAST 12 H/DAY, AT LEAST FIVE DAYS PER WEEK
     Route: 058

REACTIONS (1)
  - Injection site infection [Unknown]
